FAERS Safety Report 18246766 (Version 1)
Quarter: 2020Q3

REPORT INFORMATION
  Report Type: Spontaneous
  Country: US (occurrence: US)
  Receive Date: 20200909
  Receipt Date: 20200909
  Transmission Date: 20201103
  Serious: Yes (Hospitalization)
  Sender: FDA-Public Use
  Company Number: None

PATIENT
  Sex: Female

DRUGS (28)
  1. CLOPIDOGREL [Concomitant]
     Active Substance: CLOPIDOGREL BISULFATE
  2. FUROSEMIDE. [Concomitant]
     Active Substance: FUROSEMIDE
  3. LEVOTHYROXIN [Concomitant]
     Active Substance: LEVOTHYROXINE
  4. ESOMEPRA MAG [Concomitant]
  5. OXYCODONE AND ACETAMINOPHEN [Concomitant]
     Active Substance: ACETAMINOPHEN\OXYCODONE HYDROCHLORIDE
  6. ASPIRIN. [Concomitant]
     Active Substance: ASPIRIN
  7. ATORVASTATIN [Concomitant]
     Active Substance: ATORVASTATIN
  8. BUSPIRONE/CARVEDILOL [Concomitant]
  9. GLYBURIDE. [Concomitant]
     Active Substance: GLYBURIDE
  10. METOLAZONE. [Concomitant]
     Active Substance: METOLAZONE
  11. SYNIVISCONE [Concomitant]
  12. XARELTO [Concomitant]
     Active Substance: RIVAROXABAN
  13. DICYCLOMINE [Concomitant]
     Active Substance: DICYCLOMINE HYDROCHLORIDE
  14. ADEMPAS [Concomitant]
     Active Substance: RIOCIGUAT
  15. ATORVASTATIN [Concomitant]
     Active Substance: ATORVASTATIN
  16. CYCOBENZAPR [Concomitant]
  17. LANTUS SOLOS [Concomitant]
  18. POT CHLORIDE [Concomitant]
     Active Substance: POTASSIUM CHLORIDE
  19. CEFUROXIME. [Concomitant]
     Active Substance: CEFUROXIME
  20. DILTIAZEM. [Concomitant]
     Active Substance: DILTIAZEM
  21. HYDROXYZ HCL [Concomitant]
     Active Substance: HYDROXYZINE HYDROCHLORIDE
  22. TROKENDI XR [Concomitant]
     Active Substance: TOPIRAMATE
  23. VICTOZA [Concomitant]
     Active Substance: LIRAGLUTIDE
  24. ARANESP [Suspect]
     Active Substance: DARBEPOETIN ALFA
     Indication: PULMONARY ARTERIAL HYPERTENSION
     Dosage: 120MG Q2W SQ
     Route: 058
     Dates: start: 20170128
  25. JANUVIA [Concomitant]
     Active Substance: SITAGLIPTIN PHOSPHATE
  26. SERTRALINE [Concomitant]
     Active Substance: SERTRALINE HYDROCHLORIDE
  27. BUSPIRONE./CAVEDILOL [Concomitant]
  28. CEFUROXIME. [Concomitant]
     Active Substance: CEFUROXIME

REACTIONS (1)
  - Surgery [None]
